FAERS Safety Report 24014898 (Version 1)
Quarter: 2024Q2

REPORT INFORMATION
  Report Type: Spontaneous
  Country: US (occurrence: US)
  Receive Date: 20240626
  Receipt Date: 20240626
  Transmission Date: 20240716
  Serious: No
  Sender: FDA-Public Use
  Company Number: US-009507513-2406USA001926

PATIENT
  Age: 84 Year
  Sex: Female

DRUGS (3)
  1. KEYTRUDA [Suspect]
     Active Substance: PEMBROLIZUMAB
     Indication: Transitional cell carcinoma
     Dosage: 400 MILLIGRAM, EVERY 6 WEEKS
     Dates: start: 2023
  2. OLAPARIB [Suspect]
     Active Substance: OLAPARIB
     Indication: Transitional cell carcinoma
     Dosage: 300 MILLIGRAM, BID
     Route: 048
     Dates: start: 2023
  3. ENFORTUMAB VEDOTIN [Suspect]
     Active Substance: ENFORTUMAB VEDOTIN
     Indication: Transitional cell carcinoma
     Dosage: 1 MILLIGRAM/KILOGRAM, WEEKLY ON A SCHEDULE OF 2 WEEKS ON AND 1 WEEK OFF
     Dates: start: 2023

REACTIONS (5)
  - Rash [Unknown]
  - Alopecia [Unknown]
  - Weight decreased [Unknown]
  - Taste disorder [Unknown]
  - Off label use [Unknown]

NARRATIVE: CASE EVENT DATE: 20230101
